FAERS Safety Report 20579897 (Version 1)
Quarter: 2022Q1

REPORT INFORMATION
  Report Type: Other
  Country: US (occurrence: None)
  Receive Date: 20220310
  Receipt Date: 20220310
  Transmission Date: 20220423
  Serious: Yes (Hospitalization, Other)
  Sender: FDA-Public Use
  Company Number: US-ROCHE-3044950

PATIENT
  Age: 67 Year
  Sex: Male

DRUGS (5)
  1. OCREVUS [Suspect]
     Active Substance: OCRELIZUMAB
     Indication: Primary progressive multiple sclerosis
     Dosage: (PRESCRIBED AS START AT 40 ML PER HOUR, INCREASE BY 40 ML PER HOUR EVERY 30 MINUTES, MAXIMUM: 200 ML
     Route: 065
     Dates: start: 20180301
  2. BACLOFEN [Concomitant]
     Active Substance: BACLOFEN
  3. ACETAMINOPHEN [Concomitant]
     Active Substance: ACETAMINOPHEN
  4. DIPHENHYDRAMINE [Concomitant]
     Active Substance: DIPHENHYDRAMINE
  5. METHYLPREDNISOLONE [Concomitant]
     Active Substance: METHYLPREDNISOLONE

REACTIONS (5)
  - Disorientation [Unknown]
  - Muscle spasms [Unknown]
  - Urinary tract infection [Unknown]
  - Tremor [Not Recovered/Not Resolved]
  - Mobility decreased [Not Recovered/Not Resolved]

NARRATIVE: CASE EVENT DATE: 20220205
